FAERS Safety Report 5378988-4 (Version None)
Quarter: 2007Q3

REPORT INFORMATION
  Report Type: 
  Country: None (occurrence: None)
  Receive Date: 20070705
  Receipt Date: 20070625
  Transmission Date: 20080115
  Serious: Yes (Other)
  Sender: FDA-Public Use
  Company Number: GB-AMGEN-US232254

PATIENT
  Age: 13 Year
  Sex: Female
  Weight: 39 kg

DRUGS (1)
  1. ENBREL [Suspect]
     Indication: DRUG USE FOR UNKNOWN INDICATION
     Dosage: 32MG, FREQUENCY UNKNOWN
     Route: 058
     Dates: start: 20020416

REACTIONS (2)
  - LYMPHADENOPATHY [None]
  - TONSILLAR INFLAMMATION [None]
